FAERS Safety Report 4289419-X (Version None)
Quarter: 2004Q1

REPORT INFORMATION
  Report Type: 
  Country: None (occurrence: None)
  Receive Date: 20040126
  Receipt Date: 20031010
  Transmission Date: 20041129
  Serious: Yes (Other)
  Sender: FDA-Public Use
  Company Number: USA030330632

PATIENT
  Age: 65 Year
  Sex: Female
  Weight: 56 kg

DRUGS (8)
  1. FORTEO [Suspect]
     Indication: OSTEOPOROSIS
     Dosage: 20 UG/DAY
     Dates: start: 20021231
  2. EVISTA [Suspect]
     Dates: start: 20000601, end: 20021201
  3. CELEBREX [Concomitant]
  4. FOSAMAX [Concomitant]
  5. NASACORT AQ (TRIAMCINOLONE ACETONID) [Concomitant]
  6. PAXIL [Concomitant]
  7. ZYRTEC [Concomitant]
  8. OSCAL (CALCIUM CARBONATE) [Concomitant]

REACTIONS (6)
  - ARTHRALGIA [None]
  - BONE DENSITY DECREASED [None]
  - DIFFICULTY IN WALKING [None]
  - HOT FLUSH [None]
  - INJECTION SITE HAEMORRHAGE [None]
  - SPINAL FRACTURE [None]
